FAERS Safety Report 8969871 (Version 1)
Quarter: 2012Q4

REPORT INFORMATION
  Report Type: 
  Country: EC (occurrence: EC)
  Receive Date: 20121217
  Receipt Date: 20121217
  Transmission Date: 20130627
  Serious: Yes (Other)
  Sender: FDA-Public Use
  Company Number: PHHY2012EC115539

PATIENT
  Sex: Male

DRUGS (1)
  1. TEGRETOL CR [Suspect]
     Dosage: 400 mg, UNK
     Route: 048
     Dates: start: 20120430

REACTIONS (3)
  - Brain neoplasm [Unknown]
  - Convulsion [Not Recovered/Not Resolved]
  - Mobility decreased [Not Recovered/Not Resolved]
